FAERS Safety Report 4283396-3 (Version None)
Quarter: 2004Q1

REPORT INFORMATION
  Report Type: 
  Country: None (occurrence: None)
  Receive Date: 20040129
  Receipt Date: 20040119
  Transmission Date: 20041129
  Serious: Yes (Death)
  Sender: FDA-Public Use
  Company Number: CA-JNJFOC-20040103757

PATIENT
  Sex: Female

DRUGS (1)
  1. DURAGESIC [Suspect]
     Indication: CANCER PAIN
     Dosage: 600 UG/HR, 1 IN 48 HOUR, TRANSDERMAL
     Route: 062

REACTIONS (2)
  - APPLICATION SITE EXCORIATION [None]
  - OVERDOSE [None]
